FAERS Safety Report 24934822 (Version 4)
Quarter: 2025Q1

REPORT INFORMATION
  Report Type: Other
  Country: GB (occurrence: GB)
  Receive Date: 20250206
  Receipt Date: 20250310
  Transmission Date: 20250409
  Serious: Yes (Other)
  Sender: BIOCON
  Company Number: GB-AMGEN-GBRSP2025013935

PATIENT

DRUGS (4)
  1. HYRIMOZ [Suspect]
     Active Substance: ADALIMUMAB-ADAZ
     Indication: Rheumatoid arthritis
     Dosage: 40 MILLIGRAM(EVERY TWO WEEKS) (SOLUTION FOR INJECTION)
     Route: 058
     Dates: start: 20230911
  2. HYRIMOZ [Suspect]
     Active Substance: ADALIMUMAB-ADAZ
     Route: 058
     Dates: start: 20230911
  3. CLOPIDOGREL BESILATE [Suspect]
     Active Substance: CLOPIDOGREL BESILATE
     Indication: Product used for unknown indication
     Route: 065
  4. CLOPIDOGREL BESILATE [Suspect]
     Active Substance: CLOPIDOGREL BESILATE
     Route: 065

REACTIONS (8)
  - Hypoglycaemia [Unknown]
  - Contusion [Unknown]
  - Constipation [Unknown]
  - Decreased appetite [Recovering/Resolving]
  - Fatigue [Unknown]
  - Abdominal pain [Unknown]
  - Depression [Recovering/Resolving]
  - Gastrooesophageal reflux disease [Not Recovered/Not Resolved]
